FAERS Safety Report 5166981-6 (Version None)
Quarter: 2006Q4

REPORT INFORMATION
  Report Type: 
  Country: None (occurrence: None)
  Receive Date: 20061129
  Receipt Date: 20061116
  Transmission Date: 20070319
  Serious: Yes (Other)
  Sender: FDA-Public Use
  Company Number: 2006142651

PATIENT
  Age: 42 Year
  Sex: Male

DRUGS (4)
  1. LYRICA [Suspect]
     Indication: ANXIETY
     Dosage: 75 MG (75 MG, 1 IN 1 D), ORAL
     Route: 048
  2. VALPROIC ACID [Concomitant]
  3. OXCARBAZEPINE (OXCARBZEPINE) [Concomitant]
  4. CLONAZEPAM [Concomitant]

REACTIONS (4)
  - AGITATION [None]
  - ANXIETY [None]
  - CONDITION AGGRAVATED [None]
  - PSYCHOTIC DISORDER [None]
